FAERS Safety Report 14154247 (Version 1)
Quarter: 2017Q4

REPORT INFORMATION
  Report Type: Spontaneous
  Country: AT (occurrence: AT)
  Receive Date: 20171102
  Receipt Date: 20171102
  Transmission Date: 20180321
  Serious: Yes (Hospitalization)
  Sender: FDA-Public Use
  Company Number: AT-BEXIMCO-2017BEX00023

PATIENT
  Age: 71 Year
  Sex: Male

DRUGS (7)
  1. LIRAGLUTIDE [Concomitant]
     Active Substance: LIRAGLUTIDE
     Route: 065
  2. ENALAPRIL [Concomitant]
     Active Substance: ENALAPRIL
     Route: 065
  3. CANGLIFLOZIN [Concomitant]
     Active Substance: CANAGLIFLOZIN
     Route: 065
  4. PANTOPRAZOLE [Concomitant]
     Active Substance: PANTOPRAZOLE
     Route: 065
  5. METFORMIN HYDROCHLORIDE. [Suspect]
     Active Substance: METFORMIN HYDROCHLORIDE
     Route: 065
  6. ALLOPURINOL. [Concomitant]
     Active Substance: ALLOPURINOL
     Route: 065
  7. TORASEMID [Concomitant]
     Active Substance: TORSEMIDE
     Route: 065

REACTIONS (2)
  - Ketoacidosis [Recovered/Resolved]
  - Lactic acidosis [Recovered/Resolved]

NARRATIVE: CASE EVENT DATE: 2015
